FAERS Safety Report 9565654 (Version 1)
Quarter: 2013Q3

REPORT INFORMATION
  Report Type: Spontaneous
  Country: US (occurrence: US)
  Receive Date: 20130930
  Receipt Date: 20130930
  Transmission Date: 20140515
  Serious: No
  Sender: FDA-Public Use
  Company Number: US-PFIZER INC-2013280102

PATIENT
  Age: 62 Year
  Sex: Female
  Weight: 106.58 kg

DRUGS (2)
  1. LYRICA [Suspect]
  2. RECLAST [Suspect]

REACTIONS (1)
  - Drug hypersensitivity [Unknown]
